FAERS Safety Report 17556159 (Version 2)
Quarter: 2020Q2

REPORT INFORMATION
  Report Type: Spontaneous
  Country: US (occurrence: US)
  Receive Date: 20200318
  Receipt Date: 20200618
  Transmission Date: 20200713
  Serious: No
  Sender: FDA-Public Use
  Company Number: US-THERAPEUTICSMD-2020TMD00360

PATIENT
  Sex: Female
  Weight: 52.15 kg

DRUGS (4)
  1. IMVEXXY [Suspect]
     Active Substance: ESTRADIOL
     Indication: ATROPHIC VULVOVAGINITIS
     Dosage: 10 ?G, 2X/WEEK AT NIGHT BEFORE BED
     Route: 067
  2. MAGNESIUM [Concomitant]
     Active Substance: MAGNESIUM
  3. IMVEXXY [Suspect]
     Active Substance: ESTRADIOL
     Indication: MENOPAUSAL DISORDER
     Dosage: 10 ?G, 1X/WEEK AT NIGHT BEFORE BED
     Route: 067
     Dates: end: 202002
  4. CLARITIN [Concomitant]
     Active Substance: LORATADINE
     Dosage: UNK, AS NEEDED

REACTIONS (2)
  - Dermatitis contact [Recovered/Resolved]
  - Off label use [Recovered/Resolved]

NARRATIVE: CASE EVENT DATE: 2019
